FAERS Safety Report 7488298-7 (Version None)
Quarter: 2011Q2

REPORT INFORMATION
  Report Type: 
  Country: None (occurrence: None)
  Receive Date: 20110511
  Receipt Date: 20110502
  Transmission Date: 20111010
  Serious: Yes (Death, Other)
  Sender: FDA-Public Use
  Company Number: ALA_02263_2011

PATIENT
  Sex: Female
  Weight: 79.3795 kg

DRUGS (8)
  1. REGLAN [Suspect]
     Indication: IMPAIRED GASTRIC EMPTYING
     Dosage: (5 MG BID ORAL)
     Route: 048
     Dates: start: 20050701, end: 20091001
  2. REGLAN [Suspect]
     Indication: DYSPEPSIA
     Dosage: (5 MG BID ORAL)
     Route: 048
     Dates: start: 20050701, end: 20091001
  3. REGLAN [Suspect]
     Indication: GASTROINTESTINAL DISORDER
     Dosage: (5 MG BID ORAL)
     Route: 048
     Dates: start: 20050701, end: 20091001
  4. REGLAN [Suspect]
     Indication: GASTROOESOPHAGEAL REFLUX DISEASE
     Dosage: (5 MG BID ORAL)
     Route: 048
     Dates: start: 20050701, end: 20091001
  5. NEXIUM [Concomitant]
  6. INSULIN [Concomitant]
  7. ZOLOFT [Concomitant]
  8. PROMETHAZINE [Concomitant]

REACTIONS (7)
  - EXTRAPYRAMIDAL DISORDER [None]
  - EMOTIONAL DISORDER [None]
  - TARDIVE DYSKINESIA [None]
  - GRIMACING [None]
  - ECONOMIC PROBLEM [None]
  - DYSKINESIA [None]
  - TREMOR [None]
